FAERS Safety Report 5361064-4 (Version None)
Quarter: 2007Q2

REPORT INFORMATION
  Report Type: 
  Country: None (occurrence: None)
  Receive Date: 20070618
  Receipt Date: 20070606
  Transmission Date: 20071010
  Serious: Yes (Other)
  Sender: FDA-Public Use
  Company Number: US-PFIZER INC-2007048168

PATIENT
  Sex: Female
  Weight: 56.363 kg

DRUGS (2)
  1. CHANTIX [Suspect]
     Indication: SMOKING CESSATION THERAPY
  2. PREMARIN [Concomitant]

REACTIONS (9)
  - BREAST DISCHARGE [None]
  - CRYING [None]
  - DEPRESSION [None]
  - NAUSEA [None]
  - NERVOUSNESS [None]
  - PANIC ATTACK [None]
  - STRESS [None]
  - SURGERY [None]
  - TREMOR [None]
